FAERS Safety Report 12001420 (Version 2)
Quarter: 2016Q1

REPORT INFORMATION
  Report Type: Spontaneous
  Country: CA (occurrence: CA)
  Receive Date: 20160204
  Receipt Date: 20160217
  Transmission Date: 20160526
  Serious: Yes (Hospitalization)
  Sender: FDA-Public Use
  Company Number: CA-IGSA-GTI003599

PATIENT
  Age: 74 Year
  Sex: Female
  Weight: 57 kg

DRUGS (22)
  1. PROLASTIN-C [Suspect]
     Active Substance: .ALPHA.1-PROTEINASE INHIBITOR HUMAN
     Indication: EMPHYSEMA
     Route: 042
     Dates: start: 20151109
  2. METOPROLOL. [Concomitant]
     Active Substance: METOPROLOL
  3. POTASSIUM [Concomitant]
     Active Substance: POTASSIUM
  4. PROLASTIN-C [Suspect]
     Active Substance: .ALPHA.1-PROTEINASE INHIBITOR HUMAN
     Indication: EMPHYSEMA
     Route: 042
     Dates: start: 20151013
  5. FOLIC ACID. [Concomitant]
     Active Substance: FOLIC ACID
  6. VENTOLIN ESPETTORANTE [Concomitant]
  7. PROLASTIN-C [Suspect]
     Active Substance: .ALPHA.1-PROTEINASE INHIBITOR HUMAN
     Indication: EMPHYSEMA
     Route: 042
     Dates: start: 20150928
  8. ELTROXIN [Concomitant]
     Active Substance: LEVOTHYROXINE
     Dates: end: 201601
  9. PROLASTIN-C [Suspect]
     Active Substance: .ALPHA.1-PROTEINASE INHIBITOR HUMAN
     Indication: EMPHYSEMA
     Route: 042
     Dates: start: 20151102
  10. HYDROXYCHLOROQUINE [Concomitant]
     Active Substance: HYDROXYCHLOROQUINE
  11. WARFARIN [Concomitant]
     Active Substance: WARFARIN
  12. TECTA [Concomitant]
     Active Substance: PANTOPRAZOLE MAGNESIUM
  13. ADVAIR HFA [Concomitant]
     Active Substance: FLUTICASONE PROPIONATE\SALMETEROL XINAFOATE
  14. PROLASTIN-C [Suspect]
     Active Substance: .ALPHA.1-PROTEINASE INHIBITOR HUMAN
     Indication: EMPHYSEMA
     Route: 042
     Dates: start: 20160118
  15. PROLASTIN-C [Suspect]
     Active Substance: .ALPHA.1-PROTEINASE INHIBITOR HUMAN
     Indication: EMPHYSEMA
     Route: 042
     Dates: start: 20151005
  16. LIPITOR [Concomitant]
     Active Substance: ATORVASTATIN CALCIUM
     Dates: start: 201601
  17. PROLASTIN-C [Suspect]
     Active Substance: .ALPHA.1-PROTEINASE INHIBITOR HUMAN
     Indication: EMPHYSEMA
     Route: 042
     Dates: start: 20150928
  18. PROLASTIN-C [Suspect]
     Active Substance: .ALPHA.1-PROTEINASE INHIBITOR HUMAN
     Indication: EMPHYSEMA
     Route: 042
     Dates: start: 20150928
  19. FUROSEMIDE. [Concomitant]
     Active Substance: FUROSEMIDE
  20. ELTROXIN [Concomitant]
     Active Substance: LEVOTHYROXINE
     Dates: start: 201602
  21. METHOREX [Concomitant]
  22. AMIODARONE [Concomitant]
     Active Substance: AMIODARONE
     Dates: start: 201601

REACTIONS (9)
  - Peripheral swelling [Unknown]
  - Cough [Unknown]
  - Chest pain [Recovered/Resolved]
  - Abdominal discomfort [Unknown]
  - Dyspepsia [Unknown]
  - Oropharyngeal pain [Unknown]
  - Dizziness [Recovered/Resolved]
  - Upper-airway cough syndrome [Unknown]
  - Thyroid function test abnormal [Unknown]

NARRATIVE: CASE EVENT DATE: 20151008
